FAERS Safety Report 4718249-7 (Version None)
Quarter: 2005Q3

REPORT INFORMATION
  Report Type: 
  Country: None (occurrence: None)
  Receive Date: 20050718
  Receipt Date: 20050718
  Transmission Date: 20060218
  Serious: Yes (Life-Threatening)
  Sender: FDA-Public Use
  Company Number: None

PATIENT
  Age: 74 Year
  Sex: Male
  Weight: 102.8 kg

DRUGS (1)
  1. LOVENOX [Suspect]
     Indication: EMBOLISM
     Dates: start: 20050714, end: 20050714

REACTIONS (1)
  - HAEMORRHAGE INTRACRANIAL [None]
